FAERS Safety Report 23825242 (Version 1)
Quarter: 2024Q2

REPORT INFORMATION
  Report Type: Spontaneous
  Country: CN (occurrence: CN)
  Receive Date: 20240507
  Receipt Date: 20240507
  Transmission Date: 20240716
  Serious: Yes (Other)
  Sender: FDA-Public Use
  Company Number: CN-BAYER-2024A067140

PATIENT
  Age: 26 Year
  Sex: Male
  Weight: 60 kg

DRUGS (2)
  1. ULTRAVIST [Suspect]
     Active Substance: IOPROMIDE
     Indication: Angiogram cerebral
     Dosage: 80 ML, 4.6ML/S ONCE
     Route: 040
     Dates: start: 20240414, end: 20240414
  2. ULTRAVIST [Suspect]
     Active Substance: IOPROMIDE
     Indication: Intraventricular haemorrhage

REACTIONS (4)
  - Pyrexia [Recovering/Resolving]
  - Erythema [Recovering/Resolving]
  - Muscular weakness [Recovering/Resolving]
  - Blood pressure decreased [Recovered/Resolved]

NARRATIVE: CASE EVENT DATE: 20240414
